FAERS Safety Report 7058951-8 (Version None)
Quarter: 2010Q4

REPORT INFORMATION
  Report Type: 
  Country: None (occurrence: None)
  Receive Date: 20101025
  Receipt Date: 20101015
  Transmission Date: 20110411
  Serious: Yes (Hospitalization)
  Sender: FDA-Public Use
  Company Number: US-BIOGENIDEC-2008BI009723

PATIENT
  Age: 62 Year
  Sex: Female
  Weight: 48 kg

DRUGS (15)
  1. TYSABRI [Suspect]
     Indication: MULTIPLE SCLEROSIS
     Route: 042
     Dates: start: 20061110, end: 20070101
  2. TYSABRI [Suspect]
     Route: 042
     Dates: end: 20080101
  3. TYSABRI [Suspect]
     Route: 042
  4. NEURONTIN [Concomitant]
     Indication: PAIN
  5. NEURONTIN [Concomitant]
     Indication: MUSCLE SPASMS
  6. PROVIGIL [Concomitant]
     Indication: HYPERVIGILANCE
  7. PROVIGIL [Concomitant]
     Indication: FATIGUE
  8. VYTORIN [Concomitant]
     Indication: BLOOD CHOLESTEROL INCREASED
  9. PROZAC [Concomitant]
     Indication: DEPRESSION
  10. CYMBALTA [Concomitant]
     Indication: DEPRESSION
     Dates: start: 20080301
  11. VICODIN [Concomitant]
     Indication: PAIN
  12. FENTANYL [Concomitant]
     Indication: PAIN
  13. ADVAIR DISKUS 100/50 [Concomitant]
  14. SPIRIVA [Concomitant]
  15. NORTRIPTYLINE [Concomitant]
     Indication: SLEEP DISORDER

REACTIONS (16)
  - ARTHROPOD BITE [None]
  - BACK PAIN [None]
  - BACTERIAL INFECTION [None]
  - CONFUSIONAL STATE [None]
  - CONGENITAL OESOPHAGEAL ANOMALY [None]
  - DEPRESSION [None]
  - EFFUSION [None]
  - GIARDIASIS [None]
  - HIATUS HERNIA [None]
  - LOSS OF CONSCIOUSNESS [None]
  - MULTIPLE SCLEROSIS RELAPSE [None]
  - MUSCULOSKELETAL PAIN [None]
  - NECK PAIN [None]
  - PAIN IN EXTREMITY [None]
  - SPINAL CORD COMPRESSION [None]
  - WEIGHT DECREASED [None]
